FAERS Safety Report 9311046 (Version 1)
Quarter: 2013Q2

REPORT INFORMATION
  Report Type: Spontaneous
  Country: GB (occurrence: GB)
  Receive Date: 20130528
  Receipt Date: 20130528
  Transmission Date: 20140414
  Serious: Yes (Hospitalization)
  Sender: FDA-Public Use
  Company Number: GB-TEVA-407016ISR

PATIENT
  Age: 56 Year
  Sex: Male

DRUGS (1)
  1. ALENDRONIC ACID [Suspect]

REACTIONS (1)
  - Osteonecrosis [Recovering/Resolving]
